FAERS Safety Report 13399772 (Version 1)
Quarter: 2017Q2

REPORT INFORMATION
  Report Type: Spontaneous
  Country: US (occurrence: US)
  Receive Date: 20170404
  Receipt Date: 20170404
  Transmission Date: 20170830
  Serious: Yes (Disabling, Other)
  Sender: FDA-Public Use
  Company Number: None

PATIENT
  Age: 5 Year
  Sex: Female

DRUGS (4)
  1. MONTELUKAST [Concomitant]
     Active Substance: MONTELUKAST SODIUM
  2. LOTATADINE [Concomitant]
  3. ACETAMINOPHEN. [Concomitant]
     Active Substance: ACETAMINOPHEN
  4. CYPROHEPTADINE 2MG/5ML [Suspect]
     Active Substance: CYPROHEPTADINE
     Indication: MIGRAINE PROPHYLAXIS
     Dosage: ?          QUANTITY:5 ML;?
     Route: 048
     Dates: start: 20151201

REACTIONS (1)
  - Weight increased [None]

NARRATIVE: CASE EVENT DATE: 20170404
